FAERS Safety Report 10041311 (Version 1)
Quarter: 2014Q1

REPORT INFORMATION
  Report Type: Spontaneous
  Country: NZ (occurrence: None)
  Receive Date: 20140325
  Receipt Date: 20140325
  Transmission Date: 20141002
  Serious: Yes (Hospitalization)
  Sender: FDA-Public Use
  Company Number: 2014PL438

PATIENT
  Age: 63 Year
  Sex: Female

DRUGS (8)
  1. ALLOPURINOL (ALLOPURINOL) TABLET [Suspect]
     Indication: GOUT
  2. ASPIRIN (ACETYLSALICYLIC ACID) [Concomitant]
  3. SPIRONOLACTONE (SPIRONOLACTONE) [Concomitant]
  4. FUROSEMIDE (FUROSEMIDE) [Concomitant]
  5. METOPROLOL (METOPROLOL) [Concomitant]
  6. WARFARIN (WARFARIN) [Concomitant]
  7. AMIODARONE (AMIODARONE) [Concomitant]
  8. POTASSIUM (POTASSIUM CHLORIDE) [Concomitant]

REACTIONS (13)
  - Drug reaction with eosinophilia and systemic symptoms [None]
  - Drug eruption [None]
  - Rash maculo-papular [None]
  - Eosinophilia [None]
  - Liver function test abnormal [None]
  - C-reactive protein increased [None]
  - Thyroid function test abnormal [None]
  - Sinus bradycardia [None]
  - Electrocardiogram T wave inversion [None]
  - Torsade de pointes [None]
  - Vasculitis cerebral [None]
  - Cerebral ischaemia [None]
  - Neurological symptom [None]
